FAERS Safety Report 20146647 (Version 3)
Quarter: 2025Q4

REPORT INFORMATION
  Report Type: Spontaneous
  Country: EU (occurrence: EU)
  Receive Date: 20211203
  Receipt Date: 20251226
  Transmission Date: 20260117
  Serious: Yes (Disabling, Other)
  Sender: BRISTOL-MYERS SQUIBB COMPANY
  Company Number: EU-BRISTOL-MYERS SQUIBB COMPANY-BMS-2021-092402

PATIENT
  Sex: Male

DRUGS (7)
  1. DASATINIB [Suspect]
     Active Substance: DASATINIB
     Indication: Chronic myeloid leukaemia
     Dosage: UNK
     Dates: start: 20180712, end: 20200102
  2. DASATINIB [Suspect]
     Active Substance: DASATINIB
     Dosage: 2 DOSAGE FORM, QD
     Route: 048
     Dates: start: 201808, end: 202001
  3. PONATINIB [Suspect]
     Active Substance: PONATINIB
     Indication: Chronic myeloid leukaemia
     Dosage: UNK
     Dates: start: 20210416, end: 20210824
  4. PONATINIB [Suspect]
     Active Substance: PONATINIB
     Dosage: UNK
  5. NILOTINIB [Suspect]
     Active Substance: NILOTINIB
     Indication: Chronic myeloid leukaemia
     Dosage: UNK
     Dates: start: 20200304, end: 20210415
  6. AMLODIPINE BESYLATE [Concomitant]
     Active Substance: AMLODIPINE BESYLATE
     Indication: Hypertension
     Dosage: 5 MILLIGRAM, QD
  7. LEVOTHYROXINE [Concomitant]
     Active Substance: LEVOTHYROXINE
     Indication: Hypothyroidism
     Dosage: 0.2 MG, QD (0.1 MG X 2, QD)

REACTIONS (9)
  - Pulmonary arterial hypertension [Recovering/Resolving]
  - Interstitial lung disease [Recovering/Resolving]
  - Functional residual capacity decreased [Recovering/Resolving]
  - Pleural effusion [Recovering/Resolving]
  - Pneumocystis jirovecii infection [Recovering/Resolving]
  - Drug resistance [Unknown]
  - Dyspnoea [Recovering/Resolving]
  - Cough [Not Recovered/Not Resolved]
  - Drug intolerance [Unknown]

NARRATIVE: CASE EVENT DATE: 20190101
